FAERS Safety Report 7757706-6 (Version None)
Quarter: 2011Q3

REPORT INFORMATION
  Report Type: 
  Country: None (occurrence: None)
  Receive Date: 20110916
  Receipt Date: 20110912
  Transmission Date: 20111222
  Serious: Yes (Hospitalization, Disabling, Other)
  Sender: FDA-Public Use
  Company Number: US-MERCK-0811USA02522

PATIENT
  Age: 59 Year
  Sex: Female
  Weight: 66 kg

DRUGS (11)
  1. FOSAMAX [Suspect]
     Route: 048
     Dates: start: 20020201, end: 20070101
  2. CALCIUM CARBONATE [Concomitant]
     Route: 065
  3. VITAMIN D (UNSPECIFIED) [Concomitant]
     Route: 065
  4. FOSAMAX [Suspect]
     Route: 048
  5. FOSAMAX [Suspect]
     Route: 048
     Dates: start: 20020201, end: 20070101
  6. CALCIUM (UNSPECIFIED) [Concomitant]
     Route: 065
  7. FOSAMAX [Suspect]
     Route: 048
  8. CLARITIN [Concomitant]
     Route: 065
  9. FOSAMAX [Suspect]
     Indication: OSTEOPOROSIS
     Route: 048
     Dates: start: 19980301
  10. FOSAMAX [Suspect]
     Indication: OSTEOPENIA
     Route: 048
     Dates: start: 19980301
  11. PRAVACHOL [Concomitant]
     Route: 065

REACTIONS (54)
  - FEMUR FRACTURE [None]
  - ASTHMA [None]
  - DEVICE MALFUNCTION [None]
  - FALL [None]
  - STRESS FRACTURE [None]
  - GASTROINTESTINAL DISORDER [None]
  - CHRONIC OBSTRUCTIVE PULMONARY DISEASE [None]
  - ACNE CONGLOBATA [None]
  - SUPRAPUBIC PAIN [None]
  - SCIATICA [None]
  - VITAMIN D DEFICIENCY [None]
  - HYPERSENSITIVITY [None]
  - CERUMEN IMPACTION [None]
  - BRONCHITIS [None]
  - ADVERSE DRUG REACTION [None]
  - LIGAMENT SPRAIN [None]
  - FATIGUE [None]
  - EUSTACHIAN TUBE DYSFUNCTION [None]
  - EAR PRURITUS [None]
  - GASTROOESOPHAGEAL REFLUX DISEASE [None]
  - LOW TURNOVER OSTEOPATHY [None]
  - DEAFNESS NEUROSENSORY [None]
  - STOMATITIS [None]
  - WEIGHT INCREASED [None]
  - CHOLECYSTITIS [None]
  - PLEURISY [None]
  - OVERDOSE [None]
  - DEPRESSION [None]
  - ACUTE SINUSITIS [None]
  - TOOTH DISORDER [None]
  - PLEURAL EFFUSION [None]
  - OSTEOARTHRITIS [None]
  - VULVOVAGINAL DRYNESS [None]
  - ELECTROCARDIOGRAM ABNORMAL [None]
  - NASAL CONGESTION [None]
  - BURNOUT SYNDROME [None]
  - SPINAL OSTEOARTHRITIS [None]
  - BACK PAIN [None]
  - GENITAL INFECTION FEMALE [None]
  - BONE DISORDER [None]
  - UPPER-AIRWAY COUGH SYNDROME [None]
  - FIBROSIS [None]
  - DIAPHRAGMATIC DISORDER [None]
  - CONTUSION [None]
  - HIP ARTHROPLASTY [None]
  - PNEUMONIA [None]
  - CHEST PAIN [None]
  - SOMNOLENCE [None]
  - URINARY TRACT INFECTION [None]
  - DIVERTICULUM INTESTINAL [None]
  - URINARY TRACT DISORDER [None]
  - HYPERTENSION [None]
  - RHINITIS ALLERGIC [None]
  - DRUG HYPERSENSITIVITY [None]
